FAERS Safety Report 6144950-7 (Version None)
Quarter: 2009Q2

REPORT INFORMATION
  Report Type: 
  Country: None (occurrence: None)
  Receive Date: 20090406
  Receipt Date: 20090325
  Transmission Date: 20091009
  Serious: Yes (Other)
  Sender: FDA-Public Use
  Company Number: IT-JNJFOC-20090400858

PATIENT
  Age: 13 Year
  Sex: Female

DRUGS (4)
  1. REMICADE [Suspect]
     Dosage: 3RD INFUSION
     Route: 042
  2. REMICADE [Suspect]
     Route: 042
  3. REMICADE [Suspect]
     Indication: CROHN'S DISEASE
     Route: 042
  4. MESALAZINE [Concomitant]
     Route: 048

REACTIONS (2)
  - ANAPHYLACTIC REACTION [None]
  - INFUSION RELATED REACTION [None]
